FAERS Safety Report 15392214 (Version 1)
Quarter: 2018Q3

REPORT INFORMATION
  Report Type: Report from Study
  Country: CZ (occurrence: CZ)
  Receive Date: 20180917
  Receipt Date: 20180917
  Transmission Date: 20181010
  Serious: Yes (Death, Other)
  Sender: FDA-Public Use
  Company Number: CZ-INCYTE CORPORATION-2018IN009223

PATIENT

DRUGS (2)
  1. JAKAVI [Suspect]
     Active Substance: RUXOLITINIB
     Indication: MYELOPROLIFERATIVE NEOPLASM
     Dosage: 15 MG, BID
     Route: 065
     Dates: start: 20160107
  2. JAKAVI [Suspect]
     Active Substance: RUXOLITINIB
     Dosage: UNK (DOSE REDUCED)
     Route: 065
     Dates: end: 20180403

REACTIONS (5)
  - Liver disorder [Unknown]
  - Renal cancer [Fatal]
  - Thrombocytopenia [Recovering/Resolving]
  - Renal failure [Unknown]
  - Second primary malignancy [Fatal]

NARRATIVE: CASE EVENT DATE: 20160811
